FAERS Safety Report 25022155 (Version 3)
Quarter: 2025Q1

REPORT INFORMATION
  Report Type: Spontaneous
  Country: JP (occurrence: JP)
  Receive Date: 20250228
  Receipt Date: 20250324
  Transmission Date: 20250409
  Serious: Yes (Other)
  Sender: NOVO NORDISK
  Company Number: JP-NOVOPROD-1375247

PATIENT
  Age: 86 Year
  Sex: Female
  Weight: 70 kg

DRUGS (1)
  1. NOVORAPID [Suspect]
     Active Substance: INSULIN ASPART
     Indication: Type 2 diabetes mellitus
     Dosage: 44 IU, QD(MORNING AND EVENING)
     Route: 058

REACTIONS (1)
  - Dementia [Not Recovered/Not Resolved]
